FAERS Safety Report 5020287-4 (Version None)
Quarter: 2006Q2

REPORT INFORMATION
  Report Type: 
  Country: None (occurrence: None)
  Receive Date: 20060607
  Receipt Date: 20060301
  Transmission Date: 20061013
  Serious: Yes (Other)
  Sender: FDA-Public Use
  Company Number: FR-SANOFI-SYNTHELABO-A02200600582

PATIENT
  Sex: Male
  Weight: 79 kg

DRUGS (2)
  1. ELOXATIN [Suspect]
     Route: 042
     Dates: start: 20060213, end: 20060213
  2. GEMZAR [Concomitant]
     Route: 042

REACTIONS (2)
  - DIPLOPIA [None]
  - IIIRD NERVE PARALYSIS [None]
